FAERS Safety Report 5687052-6 (Version None)
Quarter: 2008Q1

REPORT INFORMATION
  Report Type: 
  Country: None (occurrence: None)
  Receive Date: 20080328
  Receipt Date: 20070504
  Transmission Date: 20080703
  Serious: No
  Sender: FDA-Public Use
  Company Number: US-BAYER-US-2007-016381

PATIENT
  Age: 19 Year
  Sex: Female
  Weight: 77 kg

DRUGS (1)
  1. MIRENA [Suspect]
     Indication: CONTRACEPTION
     Route: 003
     Dates: start: 20060601

REACTIONS (8)
  - ABDOMINAL PAIN [None]
  - BACK PAIN [None]
  - CHEST PAIN [None]
  - HYPERHIDROSIS [None]
  - MOOD SWINGS [None]
  - OEDEMA PERIPHERAL [None]
  - VOMITING [None]
  - WEIGHT INCREASED [None]
